FAERS Safety Report 8545411-8 (Version None)
Quarter: 2012Q3

REPORT INFORMATION
  Report Type: 
  Country: None (occurrence: None)
  Receive Date: 20120727
  Receipt Date: 20111102
  Transmission Date: 20120928
  Serious: No
  Sender: FDA-Public Use
  Company Number: US-ASTRAZENECA-2011SE66559

PATIENT
  Age: 46 Year
  Sex: Female
  Weight: 61.2 kg

DRUGS (5)
  1. ZAPREXA [Concomitant]
  2. SIMBIAX [Concomitant]
  3. ZISTARIL [Concomitant]
  4. SEROQUEL XR [Suspect]
     Indication: MOOD SWINGS
     Route: 048
     Dates: start: 20110501
  5. CHOLANAPINE [Concomitant]

REACTIONS (3)
  - DRUG DOSE OMISSION [None]
  - INSOMNIA [None]
  - OFF LABEL USE [None]
